FAERS Safety Report 8739489 (Version 3)
Quarter: 2014Q1

REPORT INFORMATION
  Report Type: Spontaneous
  Country: US (occurrence: US)
  Receive Date: 20120823
  Receipt Date: 20140217
  Transmission Date: 20141002
  Serious: Yes (Death, Hospitalization)
  Sender: FDA-Public Use
  Company Number: US-ALEXION-A201201546

PATIENT
  Sex: 0

DRUGS (2)
  1. SOLIRIS 300MG [Suspect]
     Indication: HAEMOLYTIC URAEMIC SYNDROME
     Dosage: UNK UNK, QW
     Route: 042
  2. SOLIRIS 300MG [Suspect]
     Dosage: 900 MG, QW
     Route: 042
     Dates: start: 20120721, end: 20120731

REACTIONS (6)
  - Breast cancer metastatic [Fatal]
  - Renal failure [Fatal]
  - Hepatic failure [Fatal]
  - Microangiopathic haemolytic anaemia [Fatal]
  - Laboratory test abnormal [Recovering/Resolving]
  - Nervous system disorder [Not Recovered/Not Resolved]
